FAERS Safety Report 25586005 (Version 1)
Quarter: 2025Q3

REPORT INFORMATION
  Report Type: Spontaneous
  Country: EU (occurrence: EU)
  Receive Date: 20250721
  Receipt Date: 20250721
  Transmission Date: 20251021
  Serious: Yes (Death)
  Sender: TEVA
  Company Number: EU-TEVA-VS-3353125

PATIENT

DRUGS (1)
  1. PIROXICAM [Suspect]
     Active Substance: PIROXICAM
     Indication: Product used for unknown indication
     Route: 064

REACTIONS (5)
  - Oligohydramnios [Fatal]
  - Foetal exposure during pregnancy [Unknown]
  - Embryo-foetal toxicity [Fatal]
  - Foetal death [Fatal]
  - Foetal growth restriction [Fatal]
